FAERS Safety Report 6931639-7 (Version None)
Quarter: 2010Q3

REPORT INFORMATION
  Report Type: 
  Country: None (occurrence: None)
  Receive Date: 20100819
  Receipt Date: 20100811
  Transmission Date: 20110219
  Serious: Yes (Other)
  Sender: FDA-Public Use
  Company Number: BR-ABBOTT-07P-020-0423117-00

PATIENT
  Sex: Male
  Weight: 86 kg

DRUGS (23)
  1. HUMIRA [Suspect]
     Indication: RHEUMATOID ARTHRITIS
     Route: 058
     Dates: start: 20060101
  2. SULFASALAZINE [Concomitant]
     Indication: RHEUMATOID ARTHRITIS
     Route: 048
     Dates: start: 19970101
  3. SULFASALAZINE [Concomitant]
     Indication: REITER'S SYNDROME
  4. SULFASALAZINE [Concomitant]
     Indication: OSTEOARTHRITIS
  5. OMEPRAZOLE [Concomitant]
     Indication: PRODUCT USED FOR UNKNOWN INDICATION
     Route: 048
     Dates: start: 20060101
  6. METHOTREXATE [Concomitant]
     Indication: PRODUCT USED FOR UNKNOWN INDICATION
     Route: 048
     Dates: start: 20060101
  7. CAPTOPRIL [Concomitant]
     Indication: CEREBROVASCULAR ACCIDENT
     Route: 050
     Dates: start: 20060101
  8. CAPTOPRIL [Concomitant]
     Indication: HYPERTENSION
  9. ATENOLOL [Concomitant]
     Indication: PRODUCT USED FOR UNKNOWN INDICATION
     Route: 048
     Dates: start: 19890101
  10. CALCIUM [Concomitant]
     Indication: PRODUCT USED FOR UNKNOWN INDICATION
  11. TANZOFOL [Concomitant]
     Indication: PRODUCT USED FOR UNKNOWN INDICATION
  12. BETAMETHASONE [Concomitant]
     Indication: PRODUCT USED FOR UNKNOWN INDICATION
  13. LEFLUNOMIDE [Concomitant]
     Indication: PRODUCT USED FOR UNKNOWN INDICATION
  14. ASPIRIN [Concomitant]
     Indication: ANTICOAGULANT THERAPY
     Route: 048
     Dates: start: 20060101
  15. SANDOX [Concomitant]
     Indication: NERVOUS SYSTEM DISORDER
     Route: 048
     Dates: start: 20060101
  16. ASTRO [Concomitant]
     Indication: RHEUMATOID ARTHRITIS
     Route: 048
  17. ASTRO [Concomitant]
     Indication: REITER'S SYNDROME
  18. ALIVIUM [Concomitant]
     Indication: RHEUMATOID ARTHRITIS
     Route: 048
     Dates: start: 19970101
  19. ALIVIUM [Concomitant]
     Indication: OSTEOARTHRITIS
  20. ALIVIUM [Concomitant]
     Indication: REITER'S SYNDROME
  21. FOLIC ACID [Concomitant]
     Indication: RHEUMATOID ARTHRITIS
     Route: 048
     Dates: start: 19970101
  22. FOLIC ACID [Concomitant]
     Indication: REITER'S SYNDROME
  23. FOLIC ACID [Concomitant]
     Indication: OSTEOARTHRITIS

REACTIONS (5)
  - CEREBROVASCULAR ACCIDENT [None]
  - DRUG INEFFECTIVE [None]
  - MEMORY IMPAIRMENT [None]
  - MONOPLEGIA [None]
  - PAIN [None]
